FAERS Safety Report 6506287-3 (Version None)
Quarter: 2009Q4

REPORT INFORMATION
  Report Type: 
  Country: None (occurrence: None)
  Receive Date: 20091218
  Receipt Date: 20091209
  Transmission Date: 20100525
  Serious: Yes (Hospitalization)
  Sender: FDA-Public Use
  Company Number: BR-ABBOTT-09P-020-0613482-00

PATIENT
  Sex: Female
  Weight: 56 kg

DRUGS (5)
  1. KALETRA [Suspect]
     Indication: HIV INFECTION
  2. RIFAMPICIN [Concomitant]
     Indication: TUBERCULOSIS
     Dates: start: 20091119
  3. ISONIAZID [Concomitant]
     Indication: TUBERCULOSIS
     Route: 048
     Dates: start: 20091119
  4. PIRAZINAMIDE [Concomitant]
     Indication: TUBERCULOSIS
     Route: 048
     Dates: start: 20091119
  5. ETAMBUTOL [Concomitant]
     Indication: TUBERCULOSIS
     Route: 048
     Dates: start: 20091119

REACTIONS (5)
  - HEPATIC ENZYME INCREASED [None]
  - HYPERHIDROSIS [None]
  - HYPOTENSION [None]
  - PANCREATIC ENZYMES INCREASED [None]
  - PYREXIA [None]
